FAERS Safety Report 5142789-2 (Version None)
Quarter: 2006Q4

REPORT INFORMATION
  Report Type: 
  Country: None (occurrence: None)
  Receive Date: 20061027
  Receipt Date: 20061013
  Transmission Date: 20070319
  Serious: Yes (Death, Hospitalization, Other)
  Sender: FDA-Public Use
  Company Number: US200601000833

PATIENT
  Age: 74 Year
  Sex: Male
  Weight: 121.5 kg

DRUGS (2)
  1. OLANZAPINE [Suspect]
     Indication: ABNORMAL BEHAVIOUR
     Dosage: 5 MG, ORAL
     Route: 048
     Dates: start: 20021101, end: 20041101
  2. HALOPERIDOL [Concomitant]

REACTIONS (3)
  - DIABETES MELLITUS [None]
  - DIABETIC COMA [None]
  - SEPSIS [None]
